FAERS Safety Report 16964253 (Version 1)
Quarter: 2019Q4

REPORT INFORMATION
  Report Type: Spontaneous
  Country: US (occurrence: US)
  Receive Date: 20191025
  Receipt Date: 20191025
  Transmission Date: 20200122
  Serious: Yes (Other)
  Sender: FDA-Public Use
  Company Number: None

PATIENT
  Age: 29 Year
  Sex: Female
  Weight: 59.4 kg

DRUGS (14)
  1. DEXAMETHASONE. [Concomitant]
     Active Substance: DEXAMETHASONE
  2. HYDROMORPHONE [Concomitant]
     Active Substance: HYDROMORPHONE
  3. ONDANSETRON [Concomitant]
     Active Substance: ONDANSETRON
  4. DIPHENHYDRAMINE. [Concomitant]
     Active Substance: DIPHENHYDRAMINE
  5. DEXMEDETOMIDINE. [Concomitant]
     Active Substance: DEXMEDETOMIDINE
  6. PROPOFOL. [Concomitant]
     Active Substance: PROPOFOL
  7. ROCURONIUM [Suspect]
     Active Substance: ROCURONIUM BROMIDE
     Indication: SURGERY
     Dosage: ?          OTHER FREQUENCY:ONCE;?
     Route: 042
  8. KETAMINE [Concomitant]
     Active Substance: KETAMINE
  9. MIDAZOLAM [Concomitant]
     Active Substance: MIDAZOLAM HYDROCHLORIDE
  10. FENTANYL. [Concomitant]
     Active Substance: FENTANYL
  11. CEFAZOLIN [Concomitant]
     Active Substance: CEFAZOLIN
  12. LIDOCAINE. [Concomitant]
     Active Substance: LIDOCAINE
  13. FUROSEMIDE. [Concomitant]
     Active Substance: FUROSEMIDE
  14. MANNITOL. [Concomitant]
     Active Substance: MANNITOL

REACTIONS (2)
  - Anaesthetic complication [None]
  - Dyskinesia [None]
